FAERS Safety Report 17032646 (Version 1)
Quarter: 2019Q4

REPORT INFORMATION
  Report Type: Spontaneous
  Country: US (occurrence: US)
  Receive Date: 20191014
  Receipt Date: 20191014
  Transmission Date: 20200122
  Serious: No
  Sender: FDA-Public Use
  Company Number: None

PATIENT
  Age: 38 Year
  Sex: Male

DRUGS (1)
  1. MYCOPHENOLATE MOFETIL TABLET 500MG [Suspect]
     Active Substance: MYCOPHENOLATE MOFETIL
     Route: 048
     Dates: start: 201909

REACTIONS (3)
  - Tremor [None]
  - Drug level increased [None]
  - Headache [None]

NARRATIVE: CASE EVENT DATE: 20191014
